FAERS Safety Report 18244967 (Version 1)
Quarter: 2020Q3

REPORT INFORMATION
  Report Type: Spontaneous
  Country: BR (occurrence: BR)
  Receive Date: 20200909
  Receipt Date: 20200909
  Transmission Date: 20201103
  Serious: Yes (Other)
  Sender: FDA-Public Use
  Company Number: BR-ABBVIE-20P-020-3557076-00

PATIENT
  Sex: Female
  Weight: 64.5 kg

DRUGS (12)
  1. NATURETTI [Concomitant]
     Active Substance: HERBALS
     Indication: CONSTIPATION
     Dosage: USED 1 OR 2 PER DAY WHEN SHE HAS CONSTIPATION;USED ALTERNATED WITH OTHER HERBAL MEDICATION
     Route: 048
  2. SYNTHROID [Suspect]
     Active Substance: LEVOTHYROXINE SODIUM
     Indication: HYPOTHYROIDISM
     Dosage: ADMINISTERED IN FASTING; AFTER ABOUT 1 HOUR AFTER TAKING ESOMEPRAZOLE
     Route: 048
     Dates: start: 2010
  3. BUSCOPAN [Concomitant]
     Active Substance: BUTYLSCOPOLAMINE BROMIDE
     Indication: ABDOMINAL PAIN UPPER
  4. PROLIVE [Concomitant]
     Indication: FUNCTIONAL GASTROINTESTINAL DISORDER
     Dosage: ADMINISTERED AT 2PM OR 3PM; SINCE AFTER UNSPECIFIED SURGERY, DAILY DOSE: 1 CAPSULE
     Route: 048
  5. LEXOTAN [Concomitant]
     Active Substance: BROMAZEPAM
     Indication: INSOMNIA
     Dosage: ADMINISTERED AT NIGHT; SINCE A LONG TIME AGO; DAILY DOSE: 1 TABLET
     Route: 048
  6. TAMARINE [Concomitant]
     Active Substance: HERBALS
     Indication: CONSTIPATION
     Dosage: ONE OR TWO PER DAY DEPENDING ON HER BOWELS; ALTERNATED WITH NATURETTI
     Route: 048
  7. BUSCOPAN [Concomitant]
     Active Substance: BUTYLSCOPOLAMINE BROMIDE
     Indication: PAIN
     Dosage: ADMINISTERED WITH WATER; SINCE A LONG TIME AGO WHEN SHE HAD STOMACHACHE; 1 TAB AS REQUIRED
     Route: 048
  8. VITAMIN D [ERGOCALCIFEROL] [Concomitant]
     Active Substance: ERGOCALCIFEROL
     Indication: OSTEOPOROSIS
     Dosage: ADMINISTERED IN THE MORNING; SINCE 8 YEARS AGO; FORM STRENGTH 1000
     Route: 048
  9. BUSCOPAN [Concomitant]
     Active Substance: BUTYLSCOPOLAMINE BROMIDE
     Indication: ABDOMINAL PAIN
  10. PROLIA [Concomitant]
     Active Substance: DENOSUMAB
     Indication: OSTEOPOROSIS
     Route: 058
  11. ESOMEPRAZOLE. [Concomitant]
     Active Substance: ESOMEPRAZOLE MAGNESIUM
     Indication: GASTRITIS
     Dosage: 1 DRAGEE BETWEEN 6H AND 7H AS SOON AS WAKES UP;
     Route: 048
  12. VITAMIN D [ERGOCALCIFEROL] [Concomitant]
     Active Substance: ERGOCALCIFEROL
     Dosage: ADMINISTERED IN THE MORNING; SINCE 2 MONTHS AGO; FORM STRENGTH 50000;DAILY DOSE: 1 CAPSULE
     Route: 048

REACTIONS (5)
  - Cholelithiasis [Unknown]
  - Pancreatic carcinoma [Unknown]
  - Eating disorder [Unknown]
  - Hepatic cyst [Unknown]
  - Weight decreased [Unknown]
